FAERS Safety Report 8721181 (Version 2)
Quarter: 2012Q4

REPORT INFORMATION
  Report Type: 
  Country: JP (occurrence: JP)
  Receive Date: 20120813
  Receipt Date: 20121130
  Transmission Date: 20130627
  Serious: Yes (Hospitalization)
  Sender: FDA-Public Use
  Company Number: JP-009507513-1208JPN005203

PATIENT
  Age: 74 Year
  Sex: Male
  Weight: 50 kg

DRUGS (5)
  1. PEGINTRON [Suspect]
     Indication: CHRONIC HEPATITIS C
     Dosage: 1.5 Microgram per kilogram, qw
     Route: 058
     Dates: start: 20120521, end: 20120821
  2. REBETOL [Suspect]
     Indication: CHRONIC HEPATITIS C
     Dosage: 400 mg, qd
     Route: 048
     Dates: start: 20120521, end: 20120614
  3. REBETOL [Suspect]
     Dosage: 200 mg, qd
     Route: 048
     Dates: start: 20120615, end: 20120821
  4. TELAVIC [Suspect]
     Indication: CHRONIC HEPATITIS C
     Dosage: 1500 mg, qd
     Route: 048
     Dates: start: 20120521, end: 20120624
  5. TELAVIC [Suspect]
     Dosage: 1000 mg, qd
     Route: 048
     Dates: start: 20120625, end: 20120814

REACTIONS (7)
  - Sudden hearing loss [Recovering/Resolving]
  - Pneumonia [Recovering/Resolving]
  - Drug eruption [None]
  - Pruritus [None]
  - Hyperuricaemia [None]
  - Decreased appetite [None]
  - Malaise [None]
